FAERS Safety Report 20278228 (Version 1)
Quarter: 2022Q1

REPORT INFORMATION
  Report Type: Spontaneous
  Country: HK (occurrence: HK)
  Receive Date: 20220103
  Receipt Date: 20220103
  Transmission Date: 20220423
  Serious: Yes (Hospitalization, Other)
  Sender: FDA-Public Use
  Company Number: HK-ORGANON-O2112HKG002551

PATIENT
  Age: 79 Year
  Sex: Male

DRUGS (5)
  1. SIMVASTATIN [Suspect]
     Active Substance: SIMVASTATIN
     Indication: Low density lipoprotein increased
     Dosage: 20 MILLIGRAM, HS (EVERY NIGHT)
     Route: 048
     Dates: start: 201601, end: 201807
  2. ATORVASTATIN [Suspect]
     Active Substance: ATORVASTATIN
     Indication: Low density lipoprotein increased
     Dosage: 40 MILLIGRAM, HS (40 MILLIGRAM EVERY NIGHT)
     Dates: start: 201807
  3. GLICLAZIDE [Concomitant]
     Active Substance: GLICLAZIDE
     Dosage: 160 MILLIGRAM, BID(TWICE DAILY)
  4. DAPAGLIFLOZIN [Concomitant]
     Active Substance: DAPAGLIFLOZIN
     Dosage: 10 MILLIGRAM, QD (DAILY)
  5. METFORMIN [Concomitant]
     Active Substance: METFORMIN HYDROCHLORIDE
     Dosage: 1 GRAM, BID (TWICE DAILY)

REACTIONS (1)
  - Immune-mediated myositis [Unknown]

NARRATIVE: CASE EVENT DATE: 20200101
